FAERS Safety Report 6339255-5 (Version None)
Quarter: 2009Q3

REPORT INFORMATION
  Report Type: 
  Country: None (occurrence: None)
  Receive Date: 20090903
  Receipt Date: 20090825
  Transmission Date: 20100115
  Serious: Yes (Hospitalization)
  Sender: FDA-Public Use
  Company Number: A0772848A

PATIENT
  Age: 51 Year
  Sex: Male
  Weight: 144.1 kg

DRUGS (7)
  1. AVANDIA [Suspect]
     Dosage: 8MG PER DAY
     Route: 048
     Dates: start: 20000531, end: 20070304
  2. METFORMIN HCL [Concomitant]
  3. ATENOLOL [Concomitant]
  4. ALTACE [Concomitant]
  5. NORVASC [Concomitant]
  6. ACCUPRIL [Concomitant]
  7. CLONIDINE [Concomitant]

REACTIONS (6)
  - ATRIAL FIBRILLATION [None]
  - CARDIAC FAILURE CONGESTIVE [None]
  - DEPRESSION [None]
  - HYPERTENSIVE EMERGENCY [None]
  - RENAL FAILURE ACUTE [None]
  - RESPIRATORY ARREST [None]
